FAERS Safety Report 20633595 (Version 2)
Quarter: 2022Q2

REPORT INFORMATION
  Report Type: Spontaneous
  Country: US (occurrence: US)
  Receive Date: 20220324
  Receipt Date: 20220407
  Transmission Date: 20220720
  Serious: Yes (Other)
  Sender: FDA-Public Use
  Company Number: US-TEVA-2022-US-2018875

PATIENT
  Age: 76 Year
  Sex: Male

DRUGS (6)
  1. METHOTREXATE [Suspect]
     Active Substance: METHOTREXATE
     Indication: Acute febrile neutrophilic dermatosis
     Route: 065
  2. PREDNISONE [Suspect]
     Active Substance: PREDNISONE
     Indication: Acute febrile neutrophilic dermatosis
     Route: 065
  3. FLUOCINONIDE [Suspect]
     Active Substance: FLUOCINONIDE
     Indication: Acute febrile neutrophilic dermatosis
     Route: 065
  4. DAPSONE [Suspect]
     Active Substance: DAPSONE
     Indication: Acute febrile neutrophilic dermatosis
     Dosage: 100 MILLIGRAM DAILY;
     Route: 048
  5. DESONIDE [Concomitant]
     Active Substance: DESONIDE
     Indication: Acute febrile neutrophilic dermatosis
     Route: 065
  6. TACROLIMUS [Concomitant]
     Active Substance: TACROLIMUS
     Indication: Acute febrile neutrophilic dermatosis
     Route: 065

REACTIONS (2)
  - Pancytopenia [Unknown]
  - Therapy non-responder [Unknown]
